FAERS Safety Report 7866829-2 (Version None)
Quarter: 2011Q4

REPORT INFORMATION
  Report Type: 
  Country: None (occurrence: None)
  Receive Date: 20111028
  Receipt Date: 20110823
  Transmission Date: 20120403
  Serious: No
  Sender: FDA-Public Use
  Company Number: US-GLAXOSMITHKLINE-A0942906A

PATIENT
  Age: 48 Year
  Sex: Female

DRUGS (3)
  1. PREDNISOLONE [Suspect]
     Indication: ASTHMA
     Route: 065
     Dates: start: 19970101, end: 19970101
  2. UNKNOWN [Concomitant]
  3. ADVAIR DISKUS 100/50 [Suspect]
     Indication: ASTHMA
     Route: 065

REACTIONS (3)
  - SINUS OPERATION [None]
  - SURGERY [None]
  - MYALGIA [None]
